FAERS Safety Report 24943411 (Version 1)
Quarter: 2025Q1

REPORT INFORMATION
  Report Type: Report from Study
  Country: US (occurrence: US)
  Receive Date: 20250207
  Receipt Date: 20250207
  Transmission Date: 20250408
  Serious: Yes (Death)
  Sender: ABBVIE
  Company Number: US-ABBVIE-6124397

PATIENT
  Age: 68 Year
  Sex: Male

DRUGS (1)
  1. VENCLEXTA [Suspect]
     Active Substance: VENETOCLAX
     Indication: Myelodysplastic syndrome with single lineage dysplasia
     Dosage: TAKE 100 MG FOUR TABLETS BY MOUTH DAILY ON DAYS 1 TO 7, THEN 21 DAYS OFF
     Route: 048

REACTIONS (2)
  - Neoplasm malignant [Fatal]
  - Off label use [Recovered/Resolved]
